FAERS Safety Report 14153008 (Version 6)
Quarter: 2019Q3

REPORT INFORMATION
  Report Type: Report from Study
  Country: US (occurrence: US)
  Receive Date: 20171102
  Receipt Date: 20190708
  Transmission Date: 20191004
  Serious: Yes (Hospitalization)
  Sender: FDA-Public Use
  Company Number: US-SA-2017SA207584

PATIENT
  Age: 69 Year
  Sex: Female

DRUGS (5)
  1. PLERIXAFOR [Suspect]
     Active Substance: PLERIXAFOR
     Dosage: 80 UG/KG
     Route: 042
     Dates: start: 20171017, end: 20171020
  2. ALPRAZOLAM. [Concomitant]
     Active Substance: ALPRAZOLAM
     Dosage: .25 MG,QD
     Route: 048
     Dates: start: 20150709
  3. CREON [Concomitant]
     Active Substance: PANCRELIPASE AMYLASE\PANCRELIPASE LIPASE\PANCRELIPASE PROTEASE
     Dosage: 36000 DF,TID
     Route: 048
     Dates: start: 20170213
  4. DIOVAN [Concomitant]
     Active Substance: VALSARTAN
     Dosage: 320 MG,QD
     Route: 048
     Dates: start: 20150903
  5. SYNTHROID [Concomitant]
     Active Substance: LEVOTHYROXINE SODIUM
     Dosage: 75 UG,QD
     Route: 048
     Dates: start: 20170814

REACTIONS (6)
  - Paraesthesia [Recovered/Resolved]
  - Dyspnoea [Recovered/Resolved]
  - Memory impairment [Recovered/Resolved]
  - Musculoskeletal pain [Recovered/Resolved]
  - Panic attack [Recovered/Resolved]
  - Palpitations [Recovered/Resolved]

NARRATIVE: CASE EVENT DATE: 20171018
